FAERS Safety Report 24362387 (Version 1)
Quarter: 2024Q3

REPORT INFORMATION
  Report Type: Spontaneous
  Country: CN (occurrence: CN)
  Receive Date: 20240925
  Receipt Date: 20240925
  Transmission Date: 20241017
  Serious: Yes (Other)
  Sender: PFIZER
  Company Number: CN-PFIZER INC-PV202400124268

PATIENT
  Age: 79 Year
  Sex: Female

DRUGS (2)
  1. SOLU-MEDROL [Suspect]
     Active Substance: METHYLPREDNISOLONE SODIUM SUCCINATE
     Indication: Dermatitis bullous
     Dosage: 40 MG, 1X/DAY
     Route: 041
     Dates: start: 20240910, end: 20240910
  2. SODIUM CHLORIDE [Concomitant]
     Active Substance: SODIUM CHLORIDE
     Indication: Vehicle solution use
     Dosage: 100 ML, 1X/DAY
     Route: 041
     Dates: start: 20240910, end: 20240910

REACTIONS (2)
  - White blood cell count increased [Recovering/Resolving]
  - Cushingoid [Recovering/Resolving]

NARRATIVE: CASE EVENT DATE: 20240910
